FAERS Safety Report 24901335 (Version 1)
Quarter: 2025Q1

REPORT INFORMATION
  Report Type: Spontaneous
  Country: US (occurrence: US)
  Receive Date: 20250129
  Receipt Date: 20250129
  Transmission Date: 20250408
  Serious: Yes (Hospitalization)
  Sender: BAYER HEALTHCARE PHARMACEUTICALS INC.
  Company Number: US-BAYER-2025A011222

PATIENT
  Sex: Male

DRUGS (7)
  1. NUBEQA [Suspect]
     Active Substance: DAROLUTAMIDE
     Route: 048
  2. DOCETAXEL [Suspect]
     Active Substance: DOCETAXEL
  3. DOCETAXEL [Suspect]
     Active Substance: DOCETAXEL
  4. DOCETAXEL [Suspect]
     Active Substance: DOCETAXEL
  5. DOCETAXEL [Suspect]
     Active Substance: DOCETAXEL
  6. DOCETAXEL [Suspect]
     Active Substance: DOCETAXEL
  7. DOCETAXEL [Suspect]
     Active Substance: DOCETAXEL
     Dates: end: 202411

REACTIONS (1)
  - Myelodysplastic syndrome with single lineage dysplasia [Not Recovered/Not Resolved]

NARRATIVE: CASE EVENT DATE: 20250122
